FAERS Safety Report 23937974 (Version 1)
Quarter: 2024Q2

REPORT INFORMATION
  Report Type: Spontaneous
  Country: FR (occurrence: FR)
  Receive Date: 20240604
  Receipt Date: 20240604
  Transmission Date: 20240716
  Serious: Yes (Life-Threatening, Hospitalization)
  Sender: FDA-Public Use
  Company Number: None

PATIENT
  Age: 22 Year
  Sex: Female
  Weight: 83 kg

DRUGS (4)
  1. ROCURONIUM [Suspect]
     Active Substance: ROCURONIUM BROMIDE
     Indication: General anaesthesia
     Dosage: 100 MILLIGRAM, TOTAL
     Route: 042
     Dates: start: 20240514, end: 20240514
  2. PROPOFOL [Suspect]
     Active Substance: PROPOFOL
     Indication: General anaesthesia
     Dosage: 300 MILLIGRAM, TOTAL
     Route: 042
     Dates: start: 20240514, end: 20240514
  3. DEXAMETHASONE [Suspect]
     Active Substance: DEXAMETHASONE
     Indication: General anaesthesia
     Dosage: 8 MILLIGRAM, TOTAL
     Route: 042
     Dates: start: 20240514, end: 20240514
  4. SUFENTA [Suspect]
     Active Substance: SUFENTANIL CITRATE
     Indication: General anaesthesia
     Dosage: 15 MILLIGRAM, TOTAL (SOLUTION FOR INJECTION (I.V. OR EPIDURAL))
     Route: 042
     Dates: start: 20240514, end: 20240514

REACTIONS (2)
  - Anaphylactic shock [Recovered/Resolved]
  - Maternal exposure during pregnancy [Unknown]

NARRATIVE: CASE EVENT DATE: 20240514
